FAERS Safety Report 4959473-8 (Version None)
Quarter: 2006Q1

REPORT INFORMATION
  Report Type: 
  Country: None (occurrence: None)
  Receive Date: 20060331
  Receipt Date: 20051123
  Transmission Date: 20060701
  Serious: Yes (Hospitalization)
  Sender: FDA-Public Use
  Company Number: US-MERCK-0511USA04069

PATIENT
  Age: 63 Year
  Sex: Male
  Weight: 123 kg

DRUGS (3)
  1. VIOXX [Suspect]
     Indication: OSTEOARTHRITIS
     Route: 048
     Dates: start: 20040101, end: 20040927
  2. PROPOXYPHENE HYDROCHLORIDE [Concomitant]
     Route: 065
  3. ACETAMINOPHEN AND HYDROCODONE BITARTRATE [Concomitant]
     Route: 065

REACTIONS (17)
  - ACUTE MYOCARDIAL INFARCTION [None]
  - ANXIETY [None]
  - ATRIAL FIBRILLATION [None]
  - CARDIAC FAILURE CONGESTIVE [None]
  - CARDIAC MURMUR [None]
  - CORONARY ARTERY DISEASE [None]
  - DEPRESSION [None]
  - DERMATITIS CONTACT [None]
  - DYSPHAGIA [None]
  - HEADACHE [None]
  - HYPERTENSIVE HEART DISEASE [None]
  - INSOMNIA [None]
  - LABILE HYPERTENSION [None]
  - OBSTRUCTIVE AIRWAYS DISORDER [None]
  - PHARYNGOLARYNGEAL PAIN [None]
  - RENAL FAILURE ACUTE [None]
  - SLEEP APNOEA SYNDROME [None]
